FAERS Safety Report 11215324 (Version 2)
Quarter: 2016Q2

REPORT INFORMATION
  Report Type: Report from Study
  Country: CO (occurrence: CO)
  Receive Date: 20150624
  Receipt Date: 20160628
  Transmission Date: 20160815
  Serious: Yes (Hospitalization)
  Sender: FDA-Public Use
  Company Number: CO-ROCHE-1598193

PATIENT
  Sex: Female

DRUGS (1)
  1. MABTHERA [Suspect]
     Active Substance: RITUXIMAB
     Indication: NON-HODGKIN^S LYMPHOMA
     Route: 042
     Dates: start: 20141217, end: 20150417

REACTIONS (4)
  - Decreased appetite [Recovered/Resolved]
  - Myalgia [Recovered/Resolved]
  - Blood creatinine increased [Recovered/Resolved]
  - Paraesthesia [Recovered/Resolved]
